FAERS Safety Report 9392253 (Version 2)
Quarter: 2013Q3

REPORT INFORMATION
  Report Type: Spontaneous
  Country: US (occurrence: US)
  Receive Date: 20130710
  Receipt Date: 20130725
  Transmission Date: 20140515
  Serious: Yes (Hospitalization)
  Sender: FDA-Public Use
  Company Number: US-ROCHE-1246358

PATIENT
  Age: 68 Year
  Sex: Female
  Weight: 112.14 kg

DRUGS (9)
  1. XOLAIR [Suspect]
     Indication: ASTHMA
     Route: 058
     Dates: start: 20100527
  2. ADVAIR DISKUS [Concomitant]
     Indication: ASTHMA
     Dosage: 500/50
     Route: 055
     Dates: start: 2001
  3. ALBUTEROL INHALATION SOLUTION [Concomitant]
     Indication: ASTHMA
     Dosage: PRN
     Route: 055
     Dates: start: 20080417
  4. PROAIR (UNITED STATES) [Concomitant]
     Indication: ASTHMA
     Dosage: MDI Q1D-PRN
     Route: 065
     Dates: start: 2007
  5. PULMICORT RESPULES [Concomitant]
     Indication: ASTHMA
     Route: 055
     Dates: start: 20080915
  6. SPIRIVA [Concomitant]
     Indication: ASTHMA
     Route: 055
     Dates: start: 2007
  7. THEO-24 [Concomitant]
     Route: 065
     Dates: start: 20031122
  8. NASONEX [Concomitant]
     Route: 065
     Dates: start: 20080324
  9. AZELASTINE [Concomitant]
     Dosage: NS
     Route: 065
     Dates: start: 20080915

REACTIONS (3)
  - Pneumonia [Recovered/Resolved]
  - Cardiac failure congestive [Recovered/Resolved]
  - Bronchitis [Recovered/Resolved]
